FAERS Safety Report 8609587-6 (Version None)
Quarter: 2012Q3

REPORT INFORMATION
  Report Type: 
  Country: None (occurrence: None)
  Receive Date: 20120821
  Receipt Date: 20120820
  Transmission Date: 20120928
  Serious: No
  Sender: FDA-Public Use
  Company Number: US-PFIZER INC-2012203775

PATIENT
  Age: 44 Year
  Sex: Female
  Weight: 70.295 kg

DRUGS (8)
  1. FLEXERIL [Concomitant]
     Indication: MUSCLE DISORDER
     Dosage: UNK
  2. XANAX [Concomitant]
     Indication: ANXIETY
  3. WELLBUTRIN [Concomitant]
     Indication: DEPRESSION
     Dosage: UNK
  4. CELEXA [Concomitant]
     Indication: ANXIETY
  5. WELLBUTRIN [Concomitant]
     Indication: ANXIETY
  6. LYRICA [Suspect]
     Indication: FIBROMYALGIA
     Dosage: 200 MG, 1X/DAY
     Route: 048
     Dates: start: 20120301, end: 20120806
  7. CELEXA [Concomitant]
     Indication: DEPRESSION
     Dosage: UNK
  8. XANAX [Concomitant]
     Indication: DEPRESSION
     Dosage: UNK

REACTIONS (4)
  - CONFUSIONAL STATE [None]
  - PAIN [None]
  - CRYING [None]
  - WITHDRAWAL SYNDROME [None]
